FAERS Safety Report 20162153 (Version 1)
Quarter: 2021Q4

REPORT INFORMATION
  Report Type: Spontaneous
  Country: US (occurrence: US)
  Receive Date: 20211208
  Receipt Date: 20211208
  Transmission Date: 20220303
  Serious: Yes (Hospitalization, Other)
  Sender: FDA-Public Use
  Company Number: US-BRISTOL-MYERS SQUIBB COMPANY-BMS-2021-131466

PATIENT
  Age: 73 Year
  Sex: Male

DRUGS (1)
  1. NIVOLUMAB [Suspect]
     Active Substance: NIVOLUMAB
     Indication: Metastatic renal cell carcinoma
     Dosage: UNKNOWN
     Route: 065

REACTIONS (6)
  - Immune-mediated enterocolitis [Unknown]
  - Anaemia [Unknown]
  - Hypovolaemic shock [Unknown]
  - Large intestine perforation [Unknown]
  - Duodenal ulcer haemorrhage [Unknown]
  - Colonic abscess [Unknown]
